FAERS Safety Report 12235574 (Version 2)
Quarter: 2017Q1

REPORT INFORMATION
  Report Type: Spontaneous
  Country: US (occurrence: US)
  Receive Date: 20160404
  Receipt Date: 20170308
  Transmission Date: 20170428
  Serious: No
  Sender: FDA-Public Use
  Company Number: US-PFIZER INC-2016146948

PATIENT
  Sex: Male

DRUGS (1)
  1. FELDENE [Suspect]
     Active Substance: PIROXICAM
     Dosage: UNK

REACTIONS (3)
  - Drug hypersensitivity [Unknown]
  - Chest pain [Unknown]
  - Skin discolouration [Unknown]
